FAERS Safety Report 9110522 (Version 1)
Quarter: 2013Q1

REPORT INFORMATION
  Report Type: Spontaneous
  Country: US (occurrence: US)
  Receive Date: 20130219
  Receipt Date: 20130219
  Transmission Date: 20140127
  Serious: No
  Sender: FDA-Public Use
  Company Number: US-BRACCO-008754

PATIENT
  Sex: Female

DRUGS (2)
  1. ISOVUE 300 [Suspect]
     Indication: PRODUCT USED FOR UNKNOWN INDICATION
     Dates: start: 20121023, end: 20121023
  2. ISOVUE 300 [Suspect]
     Indication: DIAGNOSTIC PROCEDURE
     Dates: start: 20121023, end: 20121023

REACTIONS (2)
  - Accidental exposure to product [Unknown]
  - Erythema [Unknown]
